FAERS Safety Report 26169446 (Version 1)
Quarter: 2025Q4

REPORT INFORMATION
  Report Type: Spontaneous
  Country: EU (occurrence: EU)
  Receive Date: 20251217
  Receipt Date: 20251217
  Transmission Date: 20260118
  Serious: Yes (Hospitalization)
  Sender: PFIZER
  Company Number: EU-SANDOZ-SDZ2025DE092392

PATIENT
  Sex: Male

DRUGS (2)
  1. METHOTREXATE SODIUM [Suspect]
     Active Substance: METHOTREXATE SODIUM
     Dosage: 15 MG
     Route: 048
     Dates: start: 20241015
  2. IBUPROFEN [Suspect]
     Active Substance: IBUPROFEN
     Dosage: 1200 MG
     Route: 065
     Dates: start: 20240302

REACTIONS (1)
  - Osteoarthritis [Unknown]

NARRATIVE: CASE EVENT DATE: 20250312
